FAERS Safety Report 6251703-8 (Version None)
Quarter: 2009Q2

REPORT INFORMATION
  Report Type: 
  Country: None (occurrence: None)
  Receive Date: 20090630
  Receipt Date: 20090626
  Transmission Date: 20091009
  Serious: No
  Sender: FDA-Public Use
  Company Number: US-B.I. PHARMACEUTICALS,INC./RIDGEFIELD-2007-BP-01760BP

PATIENT
  Age: 52 Year
  Sex: Female

DRUGS (7)
  1. SPIRIVA [Suspect]
     Indication: LUNG DISORDER
     Dosage: 18 MCG
     Route: 055
     Dates: start: 20040101
  2. SPIRIVA [Suspect]
     Indication: DYSPNOEA
  3. SPIRIVA [Suspect]
     Indication: OXYGEN CONSUMPTION DECREASED
  4. NASONEX [Concomitant]
     Indication: HYPERSENSITIVITY
     Route: 045
  5. LORATADINE [Concomitant]
     Indication: HYPERSENSITIVITY
     Route: 048
  6. ACIPHEX [Concomitant]
     Indication: DYSPEPSIA
     Route: 048
     Dates: start: 20060101
  7. PRILOSEC [Concomitant]
     Indication: DYSPEPSIA
     Route: 048

REACTIONS (10)
  - BLOOD CHOLESTEROL INCREASED [None]
  - BLOOD TRIGLYCERIDES INCREASED [None]
  - DRY EYE [None]
  - DYSURIA [None]
  - EXCESSIVE EYE BLINKING [None]
  - TYPE 2 DIABETES MELLITUS [None]
  - URINARY TRACT INFECTION [None]
  - VISION BLURRED [None]
  - VITREOUS DETACHMENT [None]
  - VULVOVAGINAL MYCOTIC INFECTION [None]
